FAERS Safety Report 4649944-6 (Version None)
Quarter: 2005Q2

REPORT INFORMATION
  Report Type: 
  Country: None (occurrence: None)
  Receive Date: 20050428
  Receipt Date: 20050420
  Transmission Date: 20051028
  Serious: Yes (Life-Threatening, Hospitalization)
  Sender: FDA-Public Use
  Company Number: 2005-01-0690

PATIENT
  Age: 49 Year
  Sex: Male
  Weight: 81.6475 kg

DRUGS (5)
  1. PEG-INTRON [Suspect]
     Indication: HEPATITIS C
     Dosage: QW SUBCUTANEOUS
     Route: 058
     Dates: start: 20041116, end: 20041203
  2. PEG-INTRON [Suspect]
     Indication: HEPATITIS C
     Dosage: QW SUBCUTANEOUS
     Route: 058
     Dates: start: 20041201
  3. RIBAVIRIN [Suspect]
     Indication: HEPATITIS C
     Dosage: 600 MG BID ORAL
     Route: 048
     Dates: start: 20041116, end: 20041203
  4. RIBAVIRIN [Suspect]
     Indication: HEPATITIS C
     Dosage: 600 MG BID ORAL
     Route: 048
     Dates: start: 20041201
  5. METHADONE HCL [Concomitant]

REACTIONS (6)
  - GASTRITIS EROSIVE [None]
  - GASTROINTESTINAL HAEMORRHAGE [None]
  - HAEMATEMESIS [None]
  - HYPOTENSION [None]
  - INFLUENZA LIKE ILLNESS [None]
  - UPPER GASTROINTESTINAL HAEMORRHAGE [None]
